FAERS Safety Report 5612453-1 (Version None)
Quarter: 2008Q1

REPORT INFORMATION
  Report Type: 
  Country: None (occurrence: None)
  Receive Date: 20080201
  Receipt Date: 20080201
  Transmission Date: 20080703
  Serious: Yes (Other)
  Sender: FDA-Public Use
  Company Number: None

PATIENT
  Sex: Male
  Weight: 68.4932 kg

DRUGS (7)
  1. QVAR INHALER 80MCG 3M(TEVA) [Suspect]
     Indication: ASTHMA
     Dosage: 1 PUFF BY MOUTH 4 TIMES DAILY
     Route: 048
     Dates: start: 20070216
  2. LIPITOR [Concomitant]
  3. OMEPRAZOLE [Concomitant]
  4. LEVOTHYROXINE SODIUM [Concomitant]
  5. ASTELIN [Concomitant]
  6. RHINOCORT AQUA NASAL SPRAY [Concomitant]
  7. LAMICTAL [Concomitant]

REACTIONS (4)
  - DIZZINESS [None]
  - DRUG EFFECT DECREASED [None]
  - MEDICAL DEVICE COMPLICATION [None]
  - PHARMACEUTICAL PRODUCT COMPLAINT [None]
